FAERS Safety Report 9112988 (Version 1)
Quarter: 2013Q1

REPORT INFORMATION
  Report Type: Spontaneous
  Country: US (occurrence: US)
  Receive Date: 20130211
  Receipt Date: 20130211
  Transmission Date: 20140127
  Serious: Yes (Other)
  Sender: FDA-Public Use
  Company Number: US-ROCHE-1037672

PATIENT
  Sex: Female
  Weight: 35.87 kg

DRUGS (2)
  1. ACCUTANE [Suspect]
     Indication: PRODUCT USED FOR UNKNOWN INDICATION
     Route: 065
     Dates: start: 198210, end: 198211
  2. ACCUTANE [Suspect]
     Route: 065
     Dates: start: 198401, end: 198412

REACTIONS (7)
  - Crohn^s disease [Unknown]
  - Nerve compression [Unknown]
  - Depression [Unknown]
  - Suicide attempt [Unknown]
  - Colitis ulcerative [Unknown]
  - Inflammatory bowel disease [Unknown]
  - Irritable bowel syndrome [Unknown]
